FAERS Safety Report 8291457-7 (Version None)
Quarter: 2012Q2

REPORT INFORMATION
  Report Type: 
  Country: None (occurrence: None)
  Receive Date: 20120417
  Receipt Date: 20120413
  Transmission Date: 20120825
  Serious: Yes (Other)
  Sender: FDA-Public Use
  Company Number: US-PFIZER INC-2012093585

PATIENT
  Sex: Female

DRUGS (5)
  1. LEVOTHROID [Suspect]
     Dosage: UNK
  2. CALCIUM [Suspect]
     Dosage: UNK
  3. VITAMIN D [Suspect]
     Dosage: UNK
  4. ATROVENT [Suspect]
     Dosage: UNK
  5. XANAX [Suspect]
     Dosage: UNK
     Dates: start: 20100101

REACTIONS (3)
  - FEELING ABNORMAL [None]
  - BIPOLAR DISORDER [None]
  - DIZZINESS [None]
